FAERS Safety Report 4536005-X (Version None)
Quarter: 2004Q4

REPORT INFORMATION
  Report Type: 
  Country: None (occurrence: None)
  Receive Date: 20041216
  Receipt Date: 20031120
  Transmission Date: 20050328
  Serious: Yes (Life-Threatening)
  Sender: FDA-Public Use
  Company Number: HQWYE226220NOV03

PATIENT
  Age: 35 Year
  Sex: Female
  Weight: 64.47 kg

DRUGS (3)
  1. EFFEXOR XR [Suspect]
     Indication: ANXIETY
     Dosage: 37.5 MX 1X PER 1 DAY, ORAL
     Route: 048
     Dates: start: 20031113, end: 20031115
  2. EFFEXOR XR [Suspect]
     Indication: DEPRESSION
     Dosage: 37.5 MX 1X PER 1 DAY, ORAL
     Route: 048
     Dates: start: 20031113, end: 20031115
  3. EFFEXOR XR [Suspect]
     Indication: SEASONAL AFFECTIVE DISORDER
     Dosage: 37.5 MX 1X PER 1 DAY, ORAL
     Route: 048
     Dates: start: 20031113, end: 20031115

REACTIONS (1)
  - SUICIDAL IDEATION [None]
